FAERS Safety Report 17885669 (Version 2)
Quarter: 2020Q2

REPORT INFORMATION
  Report Type: Report from Study
  Country: BR (occurrence: BR)
  Receive Date: 20200611
  Receipt Date: 20200625
  Transmission Date: 20200714
  Serious: Yes (Hospitalization)
  Sender: FDA-Public Use
  Company Number: BR-JNJFOC-20200607058

PATIENT
  Age: 42 Year
  Sex: Female
  Weight: 99 kg

DRUGS (8)
  1. STELARA [Suspect]
     Active Substance: USTEKINUMAB
     Indication: PSORIASIS
     Dosage: WEEK 0
     Route: 058
     Dates: start: 20191030
  2. ACYCLOVIR                          /00587301/ [Concomitant]
     Active Substance: ACYCLOVIR
  3. ALOPURINOL [Concomitant]
     Active Substance: ALLOPURINOL
  4. DIPYRONE [Concomitant]
     Active Substance: DIPYRONE
  5. PANTOPRAZOLE [Concomitant]
     Active Substance: PANTOPRAZOLE
  6. STELARA [Suspect]
     Active Substance: USTEKINUMAB
     Dosage: WEEK 4
     Route: 058
  7. BACTRIM [Concomitant]
     Active Substance: SULFAMETHOXAZOLE\TRIMETHOPRIM
  8. STELARA [Suspect]
     Active Substance: USTEKINUMAB
     Route: 058
     Dates: end: 20200227

REACTIONS (1)
  - Diffuse large B-cell lymphoma [Unknown]

NARRATIVE: CASE EVENT DATE: 20200515
